FAERS Safety Report 20102679 (Version 1)
Quarter: 2021Q4

REPORT INFORMATION
  Report Type: Spontaneous
  Country: US (occurrence: None)
  Receive Date: 20211122
  Receipt Date: 20211122
  Transmission Date: 20220303
  Serious: No
  Sender: FDA-Public Use
  Company Number: None

PATIENT

DRUGS (1)
  1. CABENUVA [Suspect]
     Active Substance: CABOTEGRAVIR\RILPIVIRINE
     Dosage: OTHER STRENGTH : 200 MG/ML ;??AND 300 MG/ML
     Route: 042

REACTIONS (2)
  - Product packaging confusion [None]
  - Physical product label issue [None]
